FAERS Safety Report 9449774 (Version 3)
Quarter: 2013Q3

REPORT INFORMATION
  Report Type: Spontaneous
  Country: US (occurrence: US)
  Receive Date: 20130809
  Receipt Date: 20130912
  Transmission Date: 20140515
  Serious: No
  Sender: FDA-Public Use
  Company Number: US-009507513-1308USA001775

PATIENT
  Sex: Female

DRUGS (4)
  1. PEGINTRON [Suspect]
     Indication: HEPATITIS C
     Dosage: REDIPEN
     Dates: start: 20020201, end: 200208
  2. PEGINTRON [Suspect]
     Dosage: UNK
     Dates: start: 20130707
  3. REBETOL [Suspect]
     Indication: HEPATITIS C
     Dosage: UNK
     Route: 048
     Dates: start: 20020201, end: 200208
  4. REBETOL [Suspect]
     Dosage: UNK
     Route: 048
     Dates: start: 20130707

REACTIONS (3)
  - Disturbance in attention [Unknown]
  - Insomnia [Unknown]
  - Drug ineffective [Unknown]
